FAERS Safety Report 5751743-9 (Version None)
Quarter: 2008Q2

REPORT INFORMATION
  Report Type: 
  Country: None (occurrence: None)
  Receive Date: 20080529
  Receipt Date: 20080514
  Transmission Date: 20081010
  Serious: Yes (Hospitalization)
  Sender: FDA-Public Use
  Company Number: CH-ELI_LILLY_AND_COMPANY-CH200805002764

PATIENT
  Age: 75 Year
  Sex: Female

DRUGS (4)
  1. ZYPREXA [Suspect]
     Indication: AGGRESSION
  2. ABILIFY [Concomitant]
     Dosage: 10 MG, DAILY (1/D)
     Route: 048
     Dates: start: 20080109, end: 20080110
  3. LORAZEPAM [Concomitant]
     Dosage: 2.5 MG, UNKNOWN
     Route: 048
     Dates: start: 20060918, end: 20060918
  4. LORAZEPAM [Concomitant]
     Dosage: 2.5 MG, UNKNOWN
     Route: 048
     Dates: start: 20080111, end: 20080111

REACTIONS (2)
  - FALL [None]
  - HEAD INJURY [None]
